FAERS Safety Report 7602670-3 (Version None)
Quarter: 2011Q3

REPORT INFORMATION
  Report Type: 
  Country: None (occurrence: None)
  Receive Date: 20110712
  Receipt Date: 20110629
  Transmission Date: 20111222
  Serious: Yes (Hospitalization)
  Sender: FDA-Public Use
  Company Number: CA-ELI_LILLY_AND_COMPANY-CA201106008528

PATIENT
  Sex: Male

DRUGS (10)
  1. LAMOTRIGINE [Concomitant]
  2. METHOTRIMEPRAZINE [Concomitant]
  3. ZYPREXA [Suspect]
     Dosage: 2.5 MG, QD
  4. ZYPREXA [Suspect]
     Indication: BIPOLAR DISORDER
     Dosage: 5 MG, QD
  5. ZYPREXA [Suspect]
     Dosage: 10 MG, QD
  6. CLONAZEPAM [Concomitant]
  7. LORAZEPAM [Concomitant]
  8. LITHIUM [Concomitant]
  9. CELEXA [Concomitant]
  10. ZOPICLONE [Concomitant]

REACTIONS (4)
  - MASTOIDITIS [None]
  - LYMPHOCYTE COUNT INCREASED [None]
  - DIABETES MELLITUS [None]
  - DIABETES MELLITUS INADEQUATE CONTROL [None]
